FAERS Safety Report 18529694 (Version 1)
Quarter: 2020Q4

REPORT INFORMATION
  Report Type: Spontaneous
  Country: PL (occurrence: PL)
  Receive Date: 20201120
  Receipt Date: 20201120
  Transmission Date: 20210114
  Serious: Yes (Hospitalization, Other)
  Sender: FDA-Public Use
  Company Number: PL-PFIZER INC-2020105677

PATIENT
  Age: 51 Year
  Sex: Male

DRUGS (17)
  1. RELTEBON [Concomitant]
     Active Substance: OXYCODONE HYDROCHLORIDE
     Dosage: UNK
  2. MATRIFEN [Concomitant]
     Active Substance: FENTANYL
     Dosage: UNK
  3. SEVREDOL [Concomitant]
     Active Substance: MORPHINE
     Indication: SPINAL PAIN
     Dosage: UNK
  4. SEVREDOL [Concomitant]
     Active Substance: MORPHINE
     Dosage: UNK
  5. LYRICA [Concomitant]
     Active Substance: PREGABALIN
     Indication: SPINAL PAIN
     Dosage: UNK
  6. CARBOPLATIN. [Suspect]
     Active Substance: CARBOPLATIN
     Indication: LUNG ADENOCARCINOMA STAGE III
     Dosage: UNK, EVERY 3 WEEKS (AUC 5 OR 6 MG/ML/MINUTE, Q3W)
     Route: 042
  7. PEMETREXED DISODIUM [Suspect]
     Active Substance: PEMETREXED DISODIUM
     Dosage: 500 MG/M2, EVERY 3 WEEKS
     Route: 042
     Dates: start: 20200102, end: 20200123
  8. LYRICA [Concomitant]
     Active Substance: PREGABALIN
     Dosage: UNK
  9. HEPAREGEN [Concomitant]
     Dosage: UNK
  10. CEMIPLIMAB [Suspect]
     Active Substance: CEMIPLIMAB
     Indication: LUNG ADENOCARCINOMA STAGE III
     Dosage: 350 MG, EVERY 3 WEEKS (Q3W)
     Route: 042
     Dates: start: 20200102
  11. MATRIFEN [Concomitant]
     Active Substance: FENTANYL
     Indication: SPINAL PAIN
     Dosage: UNK
  12. RELTEBON [Concomitant]
     Active Substance: OXYCODONE HYDROCHLORIDE
     Indication: SPINAL PAIN
     Dosage: UNK
  13. CARBOPLATIN. [Suspect]
     Active Substance: CARBOPLATIN
     Dosage: UNK, EVERY 3 WEEKS (AUC 5 OR 6 MG/ML/MINUTE, Q3W)
     Route: 042
  14. PEMETREXED DISODIUM [Suspect]
     Active Substance: PEMETREXED DISODIUM
     Indication: LUNG ADENOCARCINOMA STAGE III
     Dosage: 500 MG/M2, EVERY 3 WEEKS (Q3W; SOLUTION FOR INFUSION)
     Route: 042
  15. PEMETREXED DISODIUM [Suspect]
     Active Substance: PEMETREXED DISODIUM
     Dosage: 500 MG/M2, EVERY 3 WEEKS (Q3W)
     Route: 042
  16. HEPAREGEN [Concomitant]
     Indication: ALANINE AMINOTRANSFERASE INCREASED
     Dosage: UNK
  17. CARBOPLATIN. [Suspect]
     Active Substance: CARBOPLATIN
     Dosage: UNK, EVERY 3 WEEKS, (AUC 5 OR 6 MG/ML/MINUTE, Q3W)
     Route: 042
     Dates: start: 20200102, end: 20200123

REACTIONS (15)
  - Anaemia [Recovered/Resolved]
  - Eosinophil count decreased [Unknown]
  - Neutrophil count increased [Unknown]
  - Haemoglobin decreased [Unknown]
  - Basophil count increased [Unknown]
  - Monocyte count increased [Unknown]
  - Blood creatinine decreased [Unknown]
  - Haematocrit increased [Unknown]
  - Blood pressure systolic decreased [Unknown]
  - Platelet count increased [Unknown]
  - Red cell distribution width increased [Unknown]
  - White blood cell count increased [Unknown]
  - Heart rate increased [Unknown]
  - Red blood cell count decreased [Unknown]
  - Respiratory rate increased [Unknown]

NARRATIVE: CASE EVENT DATE: 20200212
